FAERS Safety Report 12462485 (Version 3)
Quarter: 2017Q4

REPORT INFORMATION
  Report Type: Spontaneous
  Country: US (occurrence: US)
  Receive Date: 20160614
  Receipt Date: 20171022
  Transmission Date: 20180320
  Serious: Yes (Other)
  Sender: FDA-Public Use
  Company Number: US-BEH-2016070212

PATIENT
  Age: 6 Year
  Sex: Male
  Weight: 21.77 kg

DRUGS (2)
  1. HIZENTRA [Suspect]
     Active Substance: HUMAN IMMUNOGLOBULIN G
     Dosage: 4 G, QW
     Route: 058
     Dates: start: 20160503
  2. HIZENTRA [Suspect]
     Active Substance: HUMAN IMMUNOGLOBULIN G
     Indication: HYPOGAMMAGLOBULINAEMIA
     Dosage: 4 G, QW
     Route: 058
     Dates: start: 2014

REACTIONS (5)
  - Streptococcal infection [Unknown]
  - Pneumonia [Unknown]
  - Influenza [Unknown]
  - Drug ineffective [Unknown]
  - Ear infection [Unknown]

NARRATIVE: CASE EVENT DATE: 20160518
